FAERS Safety Report 8524053-4 (Version None)
Quarter: 2012Q3

REPORT INFORMATION
  Report Type: 
  Country: None (occurrence: None)
  Receive Date: 20120720
  Receipt Date: 20120717
  Transmission Date: 20120928
  Serious: Yes (Hospitalization)
  Sender: FDA-Public Use
  Company Number: US-TEVA-349039USA

PATIENT
  Age: 66 Year
  Sex: Female
  Weight: 85.806 kg

DRUGS (2)
  1. TREANDA [Suspect]
     Indication: CHRONIC LYMPHOCYTIC LEUKAEMIA
     Dosage: EVERY 28 DAYS
     Route: 042
     Dates: start: 20120323, end: 20120502
  2. RITUXAN [Suspect]
     Dosage: EVERY 28 DAYS
     Route: 042
     Dates: start: 20120323, end: 20120503

REACTIONS (1)
  - ATRIAL FIBRILLATION [None]
